FAERS Safety Report 11597777 (Version 1)
Quarter: 2015Q4

REPORT INFORMATION
  Report Type: Report from Study
  Country: FR (occurrence: FR)
  Receive Date: 20151006
  Receipt Date: 20151006
  Transmission Date: 20160304
  Serious: Yes (Other)
  Sender: FDA-Public Use
  Company Number: FR-TEVA-596735ISR

PATIENT
  Age: 75 Year
  Sex: Female
  Weight: 44 kg

DRUGS (8)
  1. VINCRISTINE [Concomitant]
     Active Substance: VINCRISTINE
     Indication: DIFFUSE LARGE B-CELL LYMPHOMA
     Dosage: CHEMOTHERAPY PROTOCOL R-CHOP
  2. CYCHLOPHOSPHAMIDE [Concomitant]
     Indication: DIFFUSE LARGE B-CELL LYMPHOMA
     Dosage: CHEMOTHERAPY PROTOCOL R-CHOP
  3. INNOHEP [Suspect]
     Active Substance: TINZAPARIN SODIUM
     Indication: COAGULOPATHY
     Dosage: 8000 IU (INTERNATIONAL UNIT) DAILY;
     Route: 058
     Dates: start: 20140808
  4. PREDNISONE. [Concomitant]
     Active Substance: PREDNISONE
     Indication: DIFFUSE LARGE B-CELL LYMPHOMA
     Dosage: CHEMOTEHRAPY PROTOCOL R-CHOP
  5. TEVAGRASTIM [Suspect]
     Active Substance: FILGRASTIM
     Indication: PROPHYLAXIS
     Route: 058
     Dates: start: 20141014, end: 20141019
  6. DOXORUBICIN [Concomitant]
     Active Substance: DOXORUBICIN
     Indication: DIFFUSE LARGE B-CELL LYMPHOMA
     Dosage: CHEMOTHERAPY PROTOCOL R-CHOP
  7. RITUXIMAB [Concomitant]
     Active Substance: RITUXIMAB
     Indication: DIFFUSE LARGE B-CELL LYMPHOMA
     Dosage: CHEMOTHERAPY PROTOCOL R-CHOP
  8. PRIMPERAN [Concomitant]
     Active Substance: METOCLOPRAMIDE HYDROCHLORIDE
     Indication: NAUSEA
     Dosage: 40 MILLIGRAM DAILY;
     Route: 048
     Dates: start: 20140808

REACTIONS (1)
  - Abdominal wall haematoma [Recovered/Resolved]

NARRATIVE: CASE EVENT DATE: 20141028
